FAERS Safety Report 20070472 (Version 2)
Quarter: 2022Q1

REPORT INFORMATION
  Report Type: Spontaneous
  Country: IL (occurrence: IL)
  Receive Date: 20211115
  Receipt Date: 20220217
  Transmission Date: 20220423
  Serious: Yes (Other)
  Sender: FDA-Public Use
  Company Number: IL-UCBSA-2020041101

PATIENT
  Age: 71 Year
  Sex: Female

DRUGS (5)
  1. CIMZIA [Suspect]
     Active Substance: CERTOLIZUMAB PEGOL
     Indication: Rheumatoid arthritis
     Dosage: 400 MILLIGRAM, EV 4 WEEKS
     Dates: start: 202008
  2. CIMZIA [Suspect]
     Active Substance: CERTOLIZUMAB PEGOL
     Indication: Crohn^s disease
     Dosage: 200 MILLIGRAM, EV 2 WEEKS(QOW)
  3. PREDNISONE [Concomitant]
     Active Substance: PREDNISONE
     Indication: Product used for unknown indication
  4. ZALDIAR [Concomitant]
     Active Substance: ACETAMINOPHEN\TRAMADOL HYDROCHLORIDE
     Indication: Pain
     Dosage: PARACETAMOL 325 MG , TRAMADOL HYDROCHLORIDE 37.5 MG
  5. ARTOFEN [Concomitant]
     Indication: Pain
     Dosage: 1-2 TIMES A DAY

REACTIONS (4)
  - Arthralgia [Recovering/Resolving]
  - Diaphragmatic hernia [Unknown]
  - Hernia repair [Unknown]
  - Flatulence [Unknown]

NARRATIVE: CASE EVENT DATE: 20200801
